FAERS Safety Report 25837742 (Version 2)
Quarter: 2025Q4

REPORT INFORMATION
  Report Type: Spontaneous
  Country: AU (occurrence: AU)
  Receive Date: 20250923
  Receipt Date: 20251107
  Transmission Date: 20260117
  Serious: Yes (Death, Hospitalization, Other)
  Sender: Karo Pharma
  Company Number: AU-Karo Pharma-2185131

PATIENT
  Sex: Male

DRUGS (6)
  1. TERBINAFINE [Suspect]
     Active Substance: TERBINAFINE
     Indication: Fungal infection
  2. TERBINAFINE [Suspect]
     Active Substance: TERBINAFINE
     Indication: Antifungal prophylaxis
  3. ANIDULAFUNGIN [Suspect]
     Active Substance: ANIDULAFUNGIN
  4. AMPHOTERICIN B [Suspect]
     Active Substance: AMPHOTERICIN B
  5. POSACONAZOLE [Suspect]
     Active Substance: POSACONAZOLE
  6. ISAVUCONAZOLE [Suspect]
     Active Substance: ISAVUCONAZOLE

REACTIONS (2)
  - Infection [Fatal]
  - Drug ineffective [Fatal]
